FAERS Safety Report 15540723 (Version 2)
Quarter: 2018Q4

REPORT INFORMATION
  Report Type: Spontaneous
  Country: PR (occurrence: PR)
  Receive Date: 20181023
  Receipt Date: 20181113
  Transmission Date: 20190205
  Serious: Yes (Hospitalization, Other)
  Sender: FDA-Public Use
  Company Number: PR-PFIZER INC-2018423486

PATIENT
  Age: 66 Year
  Sex: Male
  Weight: 84.37 kg

DRUGS (2)
  1. IDARUBICIN HCL [Suspect]
     Active Substance: IDARUBICIN HYDROCHLORIDE
     Indication: ACUTE MYELOID LEUKAEMIA
     Dosage: UNK, (FOR 3 DAYS OVER 30 MINUTE INCREMENTS)
     Dates: start: 20180828
  2. CYTARABINE. [Suspect]
     Active Substance: CYTARABINE
     Indication: ACUTE MYELOID LEUKAEMIA
     Dosage: UNK, (FOR 24 HOURS FOR 7 DAYS A WEEK)
     Dates: start: 20180828

REACTIONS (5)
  - Back pain [Recovered/Resolved]
  - Fungal infection [Recovering/Resolving]
  - Infection [Recovered/Resolved]
  - Red blood cell count decreased [Unknown]
  - White blood cell count decreased [Unknown]

NARRATIVE: CASE EVENT DATE: 2018
